FAERS Safety Report 19861120 (Version 1)
Quarter: 2021Q3

REPORT INFORMATION
  Report Type: Spontaneous
  Country: US (occurrence: US)
  Receive Date: 20210920
  Receipt Date: 20210920
  Transmission Date: 20211014
  Serious: No
  Sender: FDA-Public Use
  Company Number: None

PATIENT
  Sex: Male

DRUGS (1)
  1. MAVENCLAD [Suspect]
     Active Substance: CLADRIBINE
     Indication: MULTIPLE SCLEROSIS
     Dosage: TAKE 2 TABS (20MG) BY MOUTH ONCE DAILY ON DAYS 1?4 THEN TAKE 1 TAB (10MG) DAILY ON DAY5 OF CYCLE
     Route: 048
     Dates: start: 20210827

REACTIONS (1)
  - Fatigue [None]
